FAERS Safety Report 14475938 (Version 1)
Quarter: 2018Q1

REPORT INFORMATION
  Report Type: Spontaneous
  Country: US (occurrence: US)
  Receive Date: 20180201
  Receipt Date: 20180201
  Transmission Date: 20180509
  Serious: Yes (Other)
  Sender: FDA-Public Use
  Company Number: US-PRINSTON PHARMACEUTICAL INC.-2018PRN00032

PATIENT
  Age: 6 Month
  Sex: Male
  Weight: 6.3 kg

DRUGS (3)
  1. FUROSEMIDE. [Suspect]
     Active Substance: FUROSEMIDE
     Indication: BRONCHOPULMONARY DYSPLASIA
     Dosage: 3 MG/KG, 1X/DAY
     Route: 065
  2. CHLOROTHIAZIDE. [Concomitant]
     Active Substance: CHLOROTHIAZIDE
     Dosage: 22.5 MG/KG, 1X/DAY
     Route: 065
  3. PREDNISONE. [Concomitant]
     Active Substance: PREDNISONE
     Dosage: 0.5 MG/KG, EVERY 48 HOURS
     Route: 065

REACTIONS (3)
  - Hypocalcaemia [Recovered/Resolved]
  - Osteopenia [Recovered/Resolved]
  - Hyperparathyroidism secondary [Recovered/Resolved]
